FAERS Safety Report 5405630-6 (Version None)
Quarter: 2007Q3

REPORT INFORMATION
  Report Type: 
  Country: None (occurrence: None)
  Receive Date: 20070806
  Receipt Date: 20070727
  Transmission Date: 20080115
  Serious: Yes (Other)
  Sender: FDA-Public Use
  Company Number: PHRM2007FR01950

PATIENT
  Age: 83 Year
  Sex: Female
  Weight: 48 kg

DRUGS (2)
  1. COTAREG [Suspect]
     Indication: HYPERTENSION
     Route: 048
  2. NEBIVOLOL (TEMERIT) [Concomitant]
     Indication: HYPERTENSION

REACTIONS (2)
  - BREAST CANCER [None]
  - RADIOTHERAPY [None]
